FAERS Safety Report 19466437 (Version 1)
Quarter: 2021Q2

REPORT INFORMATION
  Report Type: Report from Study
  Country: None (occurrence: CA)
  Receive Date: 20210628
  Receipt Date: 20210628
  Transmission Date: 20210717
  Serious: Yes (Other)
  Sender: FDA-Public Use
  Company Number: CA-ABBVIE-21K-028-3966613-00

PATIENT
  Sex: Female

DRUGS (2)
  1. HUMIRA [Suspect]
     Active Substance: ADALIMUMAB
     Indication: HIDRADENITIS
     Route: 058
     Dates: start: 20160510
  2. HUMIRA [Suspect]
     Active Substance: ADALIMUMAB
     Dosage: ONE DAY LATE DOSE
     Route: 058

REACTIONS (3)
  - Skin lesion [Recovered/Resolved]
  - Infertility [Unknown]
  - Hidradenitis [Not Recovered/Not Resolved]
